FAERS Safety Report 6638133-1 (Version None)
Quarter: 2010Q1

REPORT INFORMATION
  Report Type: 
  Country: None (occurrence: None)
  Receive Date: 20100301
  Receipt Date: 20091030
  Transmission Date: 20100710
  Serious: Yes (Other)
  Sender: FDA-Public Use
  Company Number: ALA_00380_2009

PATIENT
  Sex: Female

DRUGS (1)
  1. REGLAN [Suspect]
     Indication: DRUG USE FOR UNKNOWN INDICATION
     Dosage: (DF)
     Dates: start: 19990101, end: 20090101

REACTIONS (1)
  - TARDIVE DYSKINESIA [None]
